FAERS Safety Report 4751968-5 (Version None)
Quarter: 2005Q3

REPORT INFORMATION
  Report Type: 
  Country: None (occurrence: None)
  Receive Date: 20050824
  Receipt Date: 20030130
  Transmission Date: 20060218
  Serious: Yes (Hospitalization, Disabling)
  Sender: FDA-Public Use
  Company Number: US-MERCK-0302USA00065

PATIENT
  Age: 48 Year
  Sex: Female
  Weight: 107 kg

DRUGS (17)
  1. VIOXX [Suspect]
     Indication: PAIN
     Route: 048
     Dates: start: 20010601, end: 20010916
  2. VIOXX [Suspect]
     Route: 048
     Dates: start: 20010601, end: 20010916
  3. INSULIN, BIPHASIC ISOPHANE [INJECTION] [Concomitant]
     Indication: DIABETES MELLITUS
     Route: 065
  4. INSULIN, BIPHASIC ISOPHANE [INJECTION] [Concomitant]
     Route: 065
  5. ACCUPRIL [Concomitant]
     Indication: HYPERTENSION
     Route: 065
  6. LOPRESSOR [Concomitant]
     Indication: HYPERTENSION
     Route: 065
  7. GLUCOPHAGE [Concomitant]
     Indication: DIABETES MELLITUS
     Route: 065
  8. PLAVIX [Concomitant]
     Indication: ATHEROSCLEROSIS
     Route: 065
     Dates: start: 20000101
  9. SYNTHROID [Concomitant]
     Indication: THYROID DISORDER
     Route: 065
  10. PREMARIN [Concomitant]
     Indication: HORMONE REPLACEMENT THERAPY
     Route: 065
  11. ASPIRIN [Concomitant]
     Indication: ATHEROSCLEROSIS
     Route: 065
  12. VICODIN [Concomitant]
     Route: 065
  13. CELEBREX [Concomitant]
     Route: 065
     Dates: start: 20010731
  14. PRANDIN [Concomitant]
     Route: 065
  15. LIPITOR [Concomitant]
     Route: 065
  16. AXID [Concomitant]
     Route: 065
  17. AMARYL [Concomitant]
     Route: 065

REACTIONS (11)
  - ACUTE MYOCARDIAL INFARCTION [None]
  - ANAEMIA [None]
  - CHEST PAIN [None]
  - COAGULOPATHY [None]
  - DYSPNOEA [None]
  - FLUID RETENTION [None]
  - HAEMATOMA [None]
  - MYALGIA [None]
  - OEDEMA PERIPHERAL [None]
  - STRESS [None]
  - VASCULAR GRAFT OCCLUSION [None]
